FAERS Safety Report 4902019-0 (Version None)
Quarter: 2006Q1

REPORT INFORMATION
  Report Type: 
  Country: None (occurrence: None)
  Receive Date: 20060206
  Receipt Date: 20060130
  Transmission Date: 20060701
  Serious: Yes (Other)
  Sender: FDA-Public Use
  Company Number: US-KINGPHARMUSA00001-K200600116

PATIENT
  Age: 59 Year
  Sex: Male

DRUGS (4)
  1. ALTACE [Suspect]
     Indication: PROTEINURIA
     Dosage: 5 MG, QD
     Route: 048
     Dates: start: 20050102, end: 20050104
  2. BISOPROLOL [Concomitant]
     Indication: MYOCARDIAL ISCHAEMIA
     Dosage: 5 MG, UNK
     Route: 048
     Dates: start: 19991008
  3. ASPIRIN [Concomitant]
     Indication: MYOCARDIAL ISCHAEMIA
     Dosage: 75 MG, UNK
     Route: 048
     Dates: start: 20030120
  4. SIMVASTATIN [Concomitant]
     Indication: MYOCARDIAL ISCHAEMIA
     Dosage: 40 MG, QD
     Route: 048
     Dates: start: 20051223

REACTIONS (2)
  - COORDINATION ABNORMAL [None]
  - FEELING DRUNK [None]
